FAERS Safety Report 12218498 (Version 1)
Quarter: 2016Q1

REPORT INFORMATION
  Report Type: Spontaneous
  Country: DE (occurrence: DE)
  Receive Date: 20160329
  Receipt Date: 20160329
  Transmission Date: 20160526
  Serious: Yes (Congenital Anomaly, Other)
  Sender: FDA-Public Use
  Company Number: DE-TEVA-645665GER

PATIENT
  Age: 1 Day
  Sex: Female
  Weight: 3.02 kg

DRUGS (5)
  1. ATOSIL [Suspect]
     Active Substance: PROMETHAZINE HYDROCHLORIDE
     Indication: ACUTE PSYCHOSIS
     Dosage: 50MG/D IF REQUIRED, UNKNOWN HOW OFTEN, DOSAGE BETWEEN 50 MG/D AND 30 MG/D
     Route: 064
     Dates: start: 20150116, end: 20151004
  2. FEMIBION [Concomitant]
     Active Substance: VITAMINS
     Indication: PROPHYLAXIS OF NEURAL TUBE DEFECT
     Route: 064
     Dates: start: 20150413, end: 20151004
  3. SERTRALINE [Suspect]
     Active Substance: SERTRALINE HYDROCHLORIDE
     Indication: ACUTE PSYCHOSIS
     Dosage: 100 MILLIGRAM DAILY;
     Route: 064
     Dates: start: 20150220, end: 20151004
  4. CLOZAPIN [Suspect]
     Active Substance: CLOZAPINE
     Indication: ACUTE PSYCHOSIS
     Dosage: 75 MILLIGRAM DAILY;
     Route: 064
     Dates: start: 20150721, end: 20151004
  5. FLUANXOL [Suspect]
     Active Substance: FLUPENTIXOL
     Indication: ACUTE PSYCHOSIS
     Dosage: 4 MILLIGRAM DAILY;
     Route: 064
     Dates: start: 20150220, end: 20150720

REACTIONS (3)
  - Talipes [Unknown]
  - Respiratory disorder neonatal [Recovered/Resolved]
  - Foetal exposure during pregnancy [Unknown]

NARRATIVE: CASE EVENT DATE: 20151004
